FAERS Safety Report 5627153-1 (Version None)
Quarter: 2008Q1

REPORT INFORMATION
  Report Type: 
  Country: None (occurrence: None)
  Receive Date: 20080212
  Receipt Date: 20080212
  Transmission Date: 20080703
  Serious: Yes (Other)
  Sender: FDA-Public Use
  Company Number: None

PATIENT
  Age: 44 Year
  Sex: Female
  Weight: 72.5755 kg

DRUGS (2)
  1. CYMBALTA [Suspect]
     Indication: DEPRESSION
     Dates: start: 20070901, end: 20080101
  2. CYMBALTA [Suspect]
     Indication: FIBROMYALGIA
     Dates: start: 20070901, end: 20080101

REACTIONS (4)
  - CONCUSSION [None]
  - DEPRESSION [None]
  - FIBROMYALGIA [None]
  - SUICIDAL IDEATION [None]
